FAERS Safety Report 9761610 (Version 1)
Quarter: 2013Q4

REPORT INFORMATION
  Report Type: Spontaneous
  Country: US (occurrence: US)
  Receive Date: 20131216
  Receipt Date: 20131216
  Transmission Date: 20140711
  Serious: No
  Sender: FDA-Public Use
  Company Number: US-PFIZER INC-2013359068

PATIENT
  Age: 49 Year
  Sex: Female
  Weight: 77.1 kg

DRUGS (2)
  1. EFFEXOR XR [Suspect]
     Indication: HYPERTENSION
     Dosage: 150 MG, 1X/DAY
     Dates: start: 2012, end: 20131210
  2. EFFEXOR XR [Suspect]
     Indication: ANXIETY

REACTIONS (3)
  - Feeling abnormal [Not Recovered/Not Resolved]
  - Drug withdrawal syndrome [Not Recovered/Not Resolved]
  - Off label use [Unknown]
